FAERS Safety Report 13494553 (Version 1)
Quarter: 2017Q2

REPORT INFORMATION
  Report Type: Spontaneous
  Country: US (occurrence: US)
  Receive Date: 20170428
  Receipt Date: 20170428
  Transmission Date: 20170830
  Serious: Yes (Hospitalization)
  Sender: FDA-Public Use
  Company Number: US-STRIDES ARCOLAB LIMITED-2017SP001530

PATIENT

DRUGS (2)
  1. PREDNISOLONE. [Concomitant]
     Active Substance: PREDNISOLONE
     Indication: PARANEOPLASTIC NEUROLOGICAL SYNDROME
     Dosage: 60 MG, PER DAY
     Route: 048
  2. TACROLIMUS. [Suspect]
     Active Substance: TACROLIMUS
     Indication: PARANEOPLASTIC NEUROLOGICAL SYNDROME
     Dosage: 0.15-0.30/PER DAY IN TWO DIVIDED DOSES
     Route: 048

REACTIONS (1)
  - Mental status changes [Unknown]
